FAERS Safety Report 8947640 (Version 2)
Quarter: 2012Q4

REPORT INFORMATION
  Report Type: 
  Country: ES (occurrence: ES)
  Receive Date: 20121205
  Receipt Date: 20121213
  Transmission Date: 20130627
  Serious: Yes (Other)
  Sender: FDA-Public Use
  Company Number: ES-ROCHE-1160115

PATIENT

DRUGS (6)
  1. NELFINAVIR [Suspect]
     Indication: HIV INFECTION
     Route: 065
  2. NELFINAVIR [Suspect]
     Indication: HEPATITIS C
  3. SAQUINAVIR [Suspect]
     Indication: HIV INFECTION
     Route: 065
  4. SAQUINAVIR [Suspect]
     Indication: HEPATITIS C
  5. DIDANOSINE [Suspect]
     Indication: HIV INFECTION
     Route: 065
  6. DIDANOSINE [Suspect]
     Indication: HEPATITIS C

REACTIONS (1)
  - Hepatic fibrosis [Unknown]
